FAERS Safety Report 7201792-9 (Version None)
Quarter: 2010Q4

REPORT INFORMATION
  Report Type: 
  Country: None (occurrence: None)
  Receive Date: 20101215
  Receipt Date: 20101130
  Transmission Date: 20110411
  Serious: Yes (Hospitalization)
  Sender: FDA-Public Use
  Company Number: AUR-APL-2010-03042

PATIENT
  Sex: Male

DRUGS (6)
  1. CARVEDILOL [Suspect]
     Dosage: 25MG-DAILY-
     Dates: end: 20100801
  2. CARVEDILOL [Suspect]
     Dosage: 25MG-BID-
     Dates: start: 20100801
  3. AMIODARONE [Suspect]
     Dates: start: 20040101
  4. LISINOPRIL [Concomitant]
  5. PANTOZOL [Concomitant]
  6. ACENOCOUMAROL [Concomitant]

REACTIONS (3)
  - ARRHYTHMIA [None]
  - DRUG INTERACTION [None]
  - HEART RATE INCREASED [None]
